FAERS Safety Report 4808725-0 (Version None)
Quarter: 2005Q4

REPORT INFORMATION
  Report Type: 
  Country: None (occurrence: None)
  Receive Date: 20051021
  Receipt Date: 20051021
  Transmission Date: 20060501
  Serious: Yes (Hospitalization, Disabling, Other)
  Sender: FDA-Public Use
  Company Number: None

PATIENT
  Age: 58 Year
  Sex: Female
  Weight: 90.9 kg

DRUGS (7)
  1. ZOCOR [Suspect]
     Indication: BLOOD CHOLESTEROL INCREASED
     Dosage: 40 MG PO DAILY
     Route: 048
     Dates: start: 20010401, end: 20040101
  2. PLAVIX [Concomitant]
  3. PROTONIX [Concomitant]
  4. BENAZEPRIL HCL [Concomitant]
  5. HUMULIN N [Concomitant]
  6. COLACE [Concomitant]
  7. METOPROLOL [Concomitant]

REACTIONS (1)
  - HEPATIC FAILURE [None]
